FAERS Safety Report 15453935 (Version 2)
Quarter: 2018Q4

REPORT INFORMATION
  Report Type: Report from Study
  Country: US (occurrence: US)
  Receive Date: 20181002
  Receipt Date: 20181010
  Transmission Date: 20190204
  Serious: Yes (Other)
  Sender: FDA-Public Use
  Company Number: US-TEVA-2018-US-958536

PATIENT
  Age: 58 Year
  Sex: Male

DRUGS (1)
  1. COPAXONE [Suspect]
     Active Substance: GLATIRAMER ACETATE
     Indication: MULTIPLE SCLEROSIS
     Route: 058
     Dates: start: 20180308

REACTIONS (7)
  - Dehydration [Unknown]
  - Choking [Unknown]
  - Loss of consciousness [Unknown]
  - Dizziness [Unknown]
  - Dyspnoea [Unknown]
  - Erythema [Unknown]
  - Hypertension [Unknown]

NARRATIVE: CASE EVENT DATE: 20180921
